FAERS Safety Report 14532562 (Version 1)
Quarter: 2018Q1

REPORT INFORMATION
  Report Type: Spontaneous
  Country: US (occurrence: US)
  Receive Date: 20180213
  Receipt Date: 20180213
  Transmission Date: 20180509
  Serious: No
  Sender: FDA-Public Use
  Company Number: None

PATIENT
  Age: 84 Year
  Sex: Male

DRUGS (2)
  1. JAKAFI [Suspect]
     Active Substance: RUXOLITINIB
     Indication: MYELOFIBROSIS
     Route: 048
     Dates: start: 20170301
  2. JAKAFI [Suspect]
     Active Substance: RUXOLITINIB
     Indication: BLADDER CANCER
     Route: 048
     Dates: start: 20170301

REACTIONS (6)
  - Toothache [None]
  - Oropharyngeal pain [None]
  - Headache [None]
  - Eye pain [None]
  - Unevaluable event [None]
  - Ear pain [None]

NARRATIVE: CASE EVENT DATE: 20180212
